FAERS Safety Report 9542585 (Version 2)
Quarter: 2013Q4

REPORT INFORMATION
  Report Type: Spontaneous
  Country: US (occurrence: US)
  Receive Date: 20130923
  Receipt Date: 20131004
  Transmission Date: 20140711
  Serious: Yes (Other)
  Sender: FDA-Public Use
  Company Number: US-PFIZER INC-2013270910

PATIENT
  Age: 77 Year
  Sex: Male
  Weight: 90.7 kg

DRUGS (1)
  1. LIPITOR [Suspect]
     Indication: BLOOD CHOLESTEROL INCREASED
     Dosage: 80 MG, DAILY
     Dates: start: 1993, end: 201309

REACTIONS (4)
  - Muscle rupture [Recovered/Resolved]
  - Muscle disorder [Recovered/Resolved]
  - Muscle spasms [Recovered/Resolved]
  - Myoglobin blood increased [Unknown]
